FAERS Safety Report 8518277 (Version 2)
Quarter: 2012Q4

REPORT INFORMATION
  Report Type: 
  Country: US (occurrence: US)
  Receive Date: 20120417
  Receipt Date: 20121214
  Transmission Date: 20130627
  Serious: No
  Sender: FDA-Public Use
  Company Number: US-ASTRAZENECA-2012SE06296

PATIENT
  Age: 52 Year
  Sex: Female

DRUGS (2)
  1. NEXIUM [Suspect]
     Dosage: ONE CAPSULE DAILY
     Route: 048
  2. NEXIUM [Suspect]
     Dosage: TWO CAPSULES A DAY
     Route: 048

REACTIONS (4)
  - Gastric disorder [Unknown]
  - Malaise [Unknown]
  - Abdominal pain upper [Unknown]
  - Intentional drug misuse [Unknown]
